FAERS Safety Report 18707468 (Version 1)
Quarter: 2021Q1

REPORT INFORMATION
  Report Type: Spontaneous
  Country: LB (occurrence: LB)
  Receive Date: 20210106
  Receipt Date: 20210106
  Transmission Date: 20210419
  Serious: Yes (Hospitalization, Other)
  Sender: FDA-Public Use
  Company Number: LB-AMNEAL PHARMACEUTICALS-2020-AMRX-04144

PATIENT
  Age: 24 Year
  Sex: Male

DRUGS (2)
  1. MEROPENEM. [Suspect]
     Active Substance: MEROPENEM
     Indication: APPENDICITIS PERFORATED
     Dosage: UNK
     Route: 065
  2. ERTAPENEM. [Suspect]
     Active Substance: ERTAPENEM SODIUM
     Indication: APPENDICITIS PERFORATED
     Dosage: 1 GRAM, 1 /DAY
     Route: 042

REACTIONS (1)
  - Hyperkalaemia [Recovered/Resolved]
